FAERS Safety Report 7622495-2 (Version None)
Quarter: 2011Q3

REPORT INFORMATION
  Report Type: 
  Country: None (occurrence: None)
  Receive Date: 20110719
  Receipt Date: 20110719
  Transmission Date: 20111222
  Serious: Yes (Other)
  Sender: FDA-Public Use
  Company Number: None

PATIENT
  Age: 78 Year
  Sex: Male

DRUGS (2)
  1. ACTIMMUNE [Suspect]
     Indication: PULMONARY FIBROSIS
     Dosage: ACTIMMUNE200MCG BTW SQ
     Route: 058
     Dates: start: 20110708, end: 20110712
  2. ACTIMMUNE [Suspect]
     Indication: PULMONARY FIBROSIS
     Dosage: ACTIMMUNE200MCG BTW SQ
     Route: 058
     Dates: start: 20110118, end: 20110613

REACTIONS (5)
  - NAUSEA [None]
  - FATIGUE [None]
  - VOMITING [None]
  - TREMOR [None]
  - DIZZINESS [None]
